FAERS Safety Report 25242170 (Version 1)
Quarter: 2025Q2

REPORT INFORMATION
  Report Type: Spontaneous
  Country: US (occurrence: US)
  Receive Date: 20250426
  Receipt Date: 20250426
  Transmission Date: 20250717
  Serious: Yes (Other)
  Sender: UNICHEM
  Company Number: US-UNICHEM LABORATORIES LIMITED-UNI-2025-US-001993

PATIENT

DRUGS (3)
  1. BACLOFEN [Suspect]
     Active Substance: BACLOFEN
     Indication: Dystonia
  2. BACLOFEN [Suspect]
     Active Substance: BACLOFEN
     Indication: Cerebral palsy
  3. BACLOFEN [Suspect]
     Active Substance: BACLOFEN

REACTIONS (1)
  - Hydrocephalus [Unknown]
